FAERS Safety Report 19014210 (Version 2)
Quarter: 2021Q2

REPORT INFORMATION
  Report Type: Spontaneous
  Country: VN (occurrence: VN)
  Receive Date: 20210316
  Receipt Date: 20210402
  Transmission Date: 20210717
  Serious: Yes (Hospitalization)
  Sender: FDA-Public Use
  Company Number: VN-ASTRAZENECA-2021A135730

PATIENT
  Age: 26682 Day
  Sex: Male

DRUGS (4)
  1. TAGRISSO [Suspect]
     Active Substance: OSIMERTINIB
     Indication: NEOPLASM MALIGNANT
     Dosage: DAILY
     Route: 048
     Dates: start: 20210119, end: 20210127
  2. TAGRISSO [Suspect]
     Active Substance: OSIMERTINIB
     Indication: NEOPLASM MALIGNANT
     Route: 048
  3. TAGRISSO [Suspect]
     Active Substance: OSIMERTINIB
     Indication: NEOPLASM MALIGNANT
     Dosage: DAILY
     Route: 048
     Dates: start: 20210128
  4. TAGRISSO [Suspect]
     Active Substance: OSIMERTINIB
     Indication: NEOPLASM MALIGNANT
     Route: 048

REACTIONS (4)
  - Hepatic enzyme increased [Unknown]
  - Platelet count abnormal [Unknown]
  - Malignant neoplasm progression [Unknown]
  - Leukopenia [Unknown]

NARRATIVE: CASE EVENT DATE: 20210119
